FAERS Safety Report 11336428 (Version 3)
Quarter: 2015Q3

REPORT INFORMATION
  Report Type: Spontaneous
  Country: JP (occurrence: JP)
  Receive Date: 20150804
  Receipt Date: 20150824
  Transmission Date: 20151125
  Serious: Yes (Other)
  Sender: FDA-Public Use
  Company Number: JP-UCBSA-2015023286

PATIENT

DRUGS (5)
  1. MEROPEN [Suspect]
     Active Substance: MEROPENEM
     Indication: BRAIN ABSCESS
     Dosage: 3 G, ONCE DAILY (QD)
     Route: 041
     Dates: start: 20150526, end: 20150703
  2. MEROPEN [Suspect]
     Active Substance: MEROPENEM
     Dosage: UNKNOWN INCREASED DOSE
  3. ENTERONON-R [Concomitant]
     Active Substance: PROBIOTICS NOS
     Indication: ENDOCARDITIS ENTEROCOCCAL
     Dosage: 1 G, 3X/DAY (TID)
  4. SULTAMICILLIN TOSILATE [Concomitant]
     Indication: PRODUCT USED FOR UNKNOWN INDICATION
     Dosage: UNK
  5. XYZAL [Suspect]
     Active Substance: LEVOCETIRIZINE DIHYDROCHLORIDE
     Indication: RASH
     Dosage: 5 MG, ONCE DAILY (QD)
     Route: 048
     Dates: start: 20150629, end: 20150705

REACTIONS (1)
  - Neutropenia [Recovering/Resolving]

NARRATIVE: CASE EVENT DATE: 20150703
